FAERS Safety Report 22088443 (Version 2)
Quarter: 2023Q2

REPORT INFORMATION
  Report Type: Spontaneous
  Country: US (occurrence: US)
  Receive Date: 20230313
  Receipt Date: 20230607
  Transmission Date: 20230721
  Serious: No
  Sender: FDA-Public Use
  Company Number: US-PHARMAESSENTIA CORPORATION-US-2023-PEC-001005

PATIENT

DRUGS (11)
  1. BESREMI [Suspect]
     Active Substance: ROPEGINTERFERON ALFA-2B-NJFT
     Indication: Polycythaemia vera
     Dosage: 150 MCG, Q2W
     Route: 058
     Dates: start: 20221116
  2. BESREMI [Suspect]
     Active Substance: ROPEGINTERFERON ALFA-2B-NJFT
     Dosage: 300 MCG
     Route: 065
  3. ASPIRIN [Concomitant]
     Active Substance: ASPIRIN
     Indication: Product used for unknown indication
     Dosage: 81 MG
     Route: 048
  4. AMLODIPINA BESILAT [Concomitant]
     Indication: Product used for unknown indication
     Dosage: 10 MG
     Route: 048
  5. SINGULAIR [Concomitant]
     Active Substance: MONTELUKAST SODIUM
     Indication: Product used for unknown indication
     Dosage: 10 MG
     Route: 048
  6. ATORVASTATIN CALCIUM [Concomitant]
     Active Substance: ATORVASTATIN CALCIUM
     Indication: Product used for unknown indication
     Dosage: 20 MG
     Route: 048
  7. MAGNESIUM [Concomitant]
     Active Substance: MAGNESIUM
     Indication: Product used for unknown indication
     Dosage: 250 MG
     Route: 048
  8. VITAMIN E-400 [Concomitant]
     Indication: Product used for unknown indication
     Dosage: 400 UNITS
     Route: 048
  9. IMODIUM A-D [Concomitant]
     Active Substance: LOPERAMIDE HYDROCHLORIDE
     Indication: Product used for unknown indication
     Dosage: 2 MG
     Route: 065
  10. FISH OIL [Concomitant]
     Active Substance: FISH OIL
     Indication: Product used for unknown indication
     Dosage: 554 MG
     Route: 065
  11. TRELEGY ELLIPTA [Concomitant]
     Active Substance: FLUTICASONE FUROATE\UMECLIDINIUM BROMIDE\VILANTEROL TRIFENATATE
     Indication: Product used for unknown indication
     Route: 065

REACTIONS (4)
  - Flatulence [Unknown]
  - Dry skin [Unknown]
  - Pruritus [Unknown]
  - Diarrhoea [Recovered/Resolved]

NARRATIVE: CASE EVENT DATE: 20230111
